FAERS Safety Report 4841583-7 (Version None)
Quarter: 2005Q4

REPORT INFORMATION
  Report Type: 
  Country: None (occurrence: None)
  Receive Date: 20051130
  Receipt Date: 20050826
  Transmission Date: 20060501
  Serious: No
  Sender: FDA-Public Use
  Company Number: US-GLAXOSMITHKLINE-A0571978A

PATIENT
  Age: 48 Year
  Sex: Female

DRUGS (5)
  1. WELLBUTRIN XL [Suspect]
     Indication: DEPRESSION
     Route: 048
  2. WELLBUTRIN [Suspect]
     Indication: DEPRESSION
     Route: 048
  3. SYNTHROID [Concomitant]
  4. LANTUS [Concomitant]
  5. ALLEGRA [Concomitant]

REACTIONS (2)
  - PRURITUS [None]
  - RASH [None]
